FAERS Safety Report 14959447 (Version 2)
Quarter: 2018Q2

REPORT INFORMATION
  Report Type: Spontaneous
  Country: FR (occurrence: FR)
  Receive Date: 20180531
  Receipt Date: 20180626
  Transmission Date: 20180711
  Serious: Yes (Hospitalization, Disabling)
  Sender: FDA-Public Use
  Company Number: FR-MYLANLABS-2018M1035357

PATIENT
  Age: 43 Year
  Sex: Male

DRUGS (1)
  1. TRAMADOL. [Suspect]
     Active Substance: TRAMADOL
     Indication: SUBSTANCE USE
     Route: 065

REACTIONS (3)
  - Amnesia [Recovering/Resolving]
  - Anterograde amnesia [Recovering/Resolving]
  - Drug interaction [Recovering/Resolving]
